FAERS Safety Report 25446751 (Version 1)
Quarter: 2025Q2

REPORT INFORMATION
  Report Type: Spontaneous
  Country: US (occurrence: None)
  Receive Date: 20250617
  Receipt Date: 20250617
  Transmission Date: 20250717
  Serious: Yes (Disabling)
  Sender: FDA-CTU
  Company Number: None

PATIENT
  Age: 68 Year
  Sex: Male
  Weight: 128.25 kg

DRUGS (13)
  1. OLMESARTAN MEDOXOMIL [Suspect]
     Active Substance: OLMESARTAN MEDOXOMIL
     Indication: Hypertension
     Dosage: 90 TABLET(S) DAILY ORAL
     Route: 048
  2. BISOPROLOL FUMARATE [Suspect]
     Active Substance: BISOPROLOL FUMARATE
  3. BISOPROLOL FUMARATE\HYDROCHLOROTHIAZIDE [Suspect]
     Active Substance: BISOPROLOL FUMARATE\HYDROCHLOROTHIAZIDE
  4. INDAPAMIDE [Suspect]
     Active Substance: INDAPAMIDE
  5. LOSARTAN [Concomitant]
     Active Substance: LOSARTAN
  6. FISH OIL [Concomitant]
     Active Substance: FISH OIL
  7. CINNAMON [Concomitant]
     Active Substance: CINNAMON
  8. HERBALS\TURMERIC [Concomitant]
     Active Substance: HERBALS\TURMERIC
  9. VITAMIN C [Concomitant]
     Active Substance: ASCORBIC ACID
  10. VITAMIN D [Concomitant]
     Active Substance: VITAMIN D NOS
  11. ASPIRIN [Concomitant]
     Active Substance: ASPIRIN
  12. FOLIC ACID [Concomitant]
     Active Substance: FOLIC ACID
  13. COENZYME Q10 [Concomitant]
     Active Substance: DIETARY SUPPLEMENT\UBIDECARENONE

REACTIONS (7)
  - Middle insomnia [None]
  - Cardiac flutter [None]
  - Fatigue [None]
  - Decreased activity [None]
  - Blood pressure decreased [None]
  - Therapy interrupted [None]
  - Atrial fibrillation [None]

NARRATIVE: CASE EVENT DATE: 20250217
